FAERS Safety Report 19067565 (Version 1)
Quarter: 2021Q1

REPORT INFORMATION
  Report Type: Spontaneous
  Country: MX (occurrence: MX)
  Receive Date: 20210329
  Receipt Date: 20210329
  Transmission Date: 20210420
  Serious: Yes (Hospitalization, Other)
  Sender: FDA-Public Use
  Company Number: MX-BAYER-2021-112800

PATIENT
  Sex: Female

DRUGS (1)
  1. MIRENA [Suspect]
     Active Substance: LEVONORGESTREL
     Indication: CONTRACEPTION
     Dosage: 20 ?G PER DAY CONTINUOUSLY
     Route: 015

REACTIONS (10)
  - Palpitations [Not Recovered/Not Resolved]
  - Anal fissure [None]
  - Mood altered [None]
  - Arrhythmia [Not Recovered/Not Resolved]
  - Weight increased [None]
  - Paranoia [None]
  - Headache [None]
  - Haemorrhoids [None]
  - Alopecia [None]
  - Diarrhoea [None]
